FAERS Safety Report 16174609 (Version 1)
Quarter: 2019Q2

REPORT INFORMATION
  Report Type: Spontaneous
  Country: US (occurrence: US)
  Receive Date: 20190409
  Receipt Date: 20190409
  Transmission Date: 20190711
  Serious: Yes (Hospitalization, Other)
  Sender: FDA-Public Use
  Company Number: US-GLAXOSMITHKLINE-US2019GSK061303

PATIENT
  Age: 47 Year
  Sex: Female

DRUGS (1)
  1. SUMATRIPTAN. [Suspect]
     Active Substance: SUMATRIPTAN
     Indication: MIGRAINE
     Dosage: UNK

REACTIONS (5)
  - Coronary artery dissection [Unknown]
  - Hypokinesia [Recovered/Resolved]
  - Electrocardiogram ST segment elevation [Unknown]
  - Chest pain [Unknown]
  - Vasoconstriction [Unknown]
